FAERS Safety Report 10621506 (Version 1)
Quarter: 2014Q4

REPORT INFORMATION
  Report Type: Spontaneous
  Country: US (occurrence: None)
  Receive Date: 20141126
  Receipt Date: 20141126
  Transmission Date: 20150529
  Serious: Yes (Other)
  Sender: FDA-Public Use
  Company Number: None

PATIENT
  Age: 49 Year
  Sex: Female
  Weight: 127.01 kg

DRUGS (1)
  1. COMPOUNDED PAIN CREAM DICLOFENAC/BACLOFEN/CYCLOBENZAPRINE/BUPIVACAINE/LIDOCAINE/PRILOCAINE/IMIPRAMINE .05/.02/.02/.01/.05/.025/.03 [Suspect]
     Active Substance: BACLOFEN\BUPIVACAINE\CYCLOBENZAPRINE\DICLOFENAC\IMIPRAMINE\LIDOCAINE\PRILOCAINE
     Indication: PAIN
     Dosage: MEDSCRIPT#103-604-00?THREE TIMES DAILY?APPLIED TO A SURFACE, USUALLY THE SKIN
     Route: 061
     Dates: start: 20141124, end: 20141124

REACTIONS (8)
  - Swelling [None]
  - Agitation [None]
  - Condition aggravated [None]
  - Dyspnoea [None]
  - Erythema [None]
  - Musculoskeletal pain [None]
  - Flushing [None]
  - Disorientation [None]

NARRATIVE: CASE EVENT DATE: 20141124
